FAERS Safety Report 14489845 (Version 1)
Quarter: 2018Q1

REPORT INFORMATION
  Report Type: Spontaneous
  Country: FR (occurrence: FR)
  Receive Date: 20180206
  Receipt Date: 20180206
  Transmission Date: 20180509
  Serious: Yes (Other)
  Sender: FDA-Public Use
  Company Number: FR-009507513-1801FRA010428

PATIENT
  Sex: Male
  Weight: 36 kg

DRUGS (2)
  1. NOXAFIL [Suspect]
     Active Substance: POSACONAZOLE
     Indication: FUNGAL INFECTION
     Dosage: 260 MG, IN THE MORNING AND EVENING
     Route: 048
  2. NOXAFIL [Suspect]
     Active Substance: POSACONAZOLE
     Indication: ANTIFUNGAL PROPHYLAXIS
     Dosage: 20 MG/KG, FOR 15 DAYS OR MORE
     Route: 048

REACTIONS (2)
  - Off label use [Unknown]
  - Graft versus host disease [Unknown]
